FAERS Safety Report 24677094 (Version 1)
Quarter: 2024Q4

REPORT INFORMATION
  Report Type: Spontaneous
  Country: US (occurrence: US)
  Receive Date: 20241129
  Receipt Date: 20241129
  Transmission Date: 20250115
  Serious: No
  Sender: CIPLA
  Company Number: US-CIPLA LTD.-2024US02829

PATIENT

DRUGS (1)
  1. GABAPENTIN [Suspect]
     Active Substance: GABAPENTIN
     Indication: Product used for unknown indication
     Dosage: 100 MILLIGRAM, TID, 3 CAPSULES IN A DA
     Route: 065
     Dates: start: 202306

REACTIONS (2)
  - Peripheral swelling [Unknown]
  - Diarrhoea [Not Recovered/Not Resolved]
